FAERS Safety Report 9675430 (Version 4)
Quarter: 2014Q4

REPORT INFORMATION
  Report Type: Spontaneous
  Country: US (occurrence: US)
  Receive Date: 20131107
  Receipt Date: 20141024
  Transmission Date: 20150529
  Serious: Yes (Hospitalization)
  Sender: FDA-Public Use
  Company Number: US-BAYER-2013-134323

PATIENT
  Age: 44 Year
  Sex: Female
  Weight: 48.07 kg

DRUGS (2)
  1. LOESTRIN NOS [Concomitant]
     Active Substance: ETHINYL ESTRADIOL\NORETHINDRONE ACETATE
  2. MIRENA [Suspect]
     Active Substance: LEVONORGESTREL
     Indication: MENORRHAGIA
     Dosage: 20 MCG/24HR, CONT
     Route: 015
     Dates: start: 20111117, end: 20121003

REACTIONS (11)
  - Medical device discomfort [None]
  - Uterine perforation [None]
  - Injury [None]
  - Abdominal pain lower [None]
  - Pain [None]
  - Abdominal distension [None]
  - Menorrhagia [None]
  - Drug ineffective [None]
  - Device dislocation [None]
  - Anxiety [None]
  - Emotional distress [None]

NARRATIVE: CASE EVENT DATE: 201203
